FAERS Safety Report 4673740-7 (Version None)
Quarter: 2005Q2

REPORT INFORMATION
  Report Type: 
  Country: None (occurrence: None)
  Receive Date: 20050523
  Receipt Date: 20050510
  Transmission Date: 20051028
  Serious: Yes (Other)
  Sender: FDA-Public Use
  Company Number: 2004216588US

PATIENT
  Age: 62 Year
  Sex: Male

DRUGS (8)
  1. DEPO-TESTOSTERONE [Suspect]
     Indication: BLOOD TESTOSTERONE DECREASED
     Dosage: UNK (WEEKLY), UNKNOWN
     Dates: start: 20010615, end: 20040316
  2. ACCOLATE [Concomitant]
  3. ADVAIR (FLUTICASONE PROPIONATE, SALMETEROL XINAFOATE) [Concomitant]
  4. SEREVENT [Concomitant]
  5. ACETYLSALICYLIC ACID SRT [Concomitant]
  6. LISINOPRIL W/HYDROCHLOROTHIAZIDE (HYDROCHLOROTHIAZIDE, LISINOPRIL) [Concomitant]
  7. NAPROSYN [Concomitant]
  8. CLARITIN [Concomitant]

REACTIONS (1)
  - POLYCYTHAEMIA VERA [None]
